FAERS Safety Report 13507364 (Version 3)
Quarter: 2017Q3

REPORT INFORMATION
  Report Type: Report from Study
  Country: US (occurrence: US)
  Receive Date: 20170503
  Receipt Date: 20170821
  Transmission Date: 20171127
  Serious: Yes (Hospitalization, Other)
  Sender: FDA-Public Use
  Company Number: US-ALEXION PHARMACEUTICALS INC.-A201704449

PATIENT
  Sex: Female

DRUGS (1)
  1. SOLIRIS [Suspect]
     Active Substance: ECULIZUMAB
     Indication: PAROXYSMAL NOCTURNAL HAEMOGLOBINURIA
     Route: 042

REACTIONS (11)
  - Haemoglobin decreased [Unknown]
  - Diarrhoea [Unknown]
  - Back pain [Unknown]
  - Nausea [Unknown]
  - Pyelonephritis acute [Unknown]
  - Vomiting [Unknown]
  - Platelet count abnormal [Recovering/Resolving]
  - White blood cell disorder [Recovering/Resolving]
  - Anaemia [Unknown]
  - Hypotension [Unknown]
  - Blood calcium abnormal [Unknown]
